FAERS Safety Report 19933876 (Version 11)
Quarter: 2024Q4

REPORT INFORMATION
  Report Type: Spontaneous
  Country: US (occurrence: US)
  Receive Date: 20211008
  Receipt Date: 20241223
  Transmission Date: 20250114
  Serious: Yes (Other)
  Sender: PFIZER
  Company Number: US-PFIZER INC-202101160898

PATIENT
  Age: 65 Year
  Sex: Female

DRUGS (3)
  1. BOSULIF [Suspect]
     Active Substance: BOSUTINIB MONOHYDRATE
     Indication: Chronic myeloid leukaemia
     Dosage: 500 MG, DAILY
     Route: 048
  2. BOSULIF [Suspect]
     Active Substance: BOSUTINIB MONOHYDRATE
     Dosage: 1 TABLET DAILY
     Route: 048
  3. OMEPRAZOLE [Concomitant]
     Active Substance: OMEPRAZOLE
     Dosage: UNK

REACTIONS (10)
  - Cataract [Unknown]
  - Cerebrovascular accident [Unknown]
  - Visual impairment [Unknown]
  - Memory impairment [Unknown]
  - Musculoskeletal stiffness [Unknown]
  - Dysgraphia [Unknown]
  - Condition aggravated [Unknown]
  - Nasopharyngitis [Unknown]
  - Anger [Unknown]
  - Speech disorder [Unknown]
